FAERS Safety Report 9261891 (Version 1)
Quarter: 2013Q2

REPORT INFORMATION
  Report Type: Report from Study
  Country: TW (occurrence: TW)
  Receive Date: 20130429
  Receipt Date: 20130429
  Transmission Date: 20140414
  Serious: No
  Sender: FDA-Public Use
  Company Number: PHHY2013TW042239

PATIENT
  Age: 43 Year
  Sex: Female

DRUGS (12)
  1. AMN107 [Suspect]
     Dosage: 600 MG, UNK
     Dates: start: 20110822, end: 20111204
  2. AMN107 [Suspect]
     Dosage: 800 MG, UNK
     Dates: start: 20111205, end: 20120617
  3. AMN107 [Suspect]
     Dosage: 600 MG, UNK
     Dates: start: 20120618, end: 20120909
  4. AMN107 [Suspect]
     Dosage: 800 MG, UNK
     Dates: start: 20120910, end: 20130127
  5. ACETAMINOPHEN [Concomitant]
     Indication: HEADACHE
     Dates: start: 20111226, end: 20120423
  6. BISACODYL [Concomitant]
     Indication: CONSTIPATION
     Dates: start: 20120305
  7. CEFUROXIME [Concomitant]
     Indication: PROPHYLAXIS URINARY TRACT INFECTION
     Dates: start: 20110822, end: 20110829
  8. LEVOFLOXACIN [Concomitant]
     Indication: URINARY TRACT INFECTION
     Dates: start: 20111017, end: 20111024
  9. LORATADINE [Concomitant]
     Indication: RESPIRATORY TRACT INFECTION
     Dates: start: 20111226, end: 20111230
  10. LORAZEPAM [Concomitant]
     Indication: INSOMNIA
     Dates: start: 20120813
  11. PSEUDOEPHEDRINE [Concomitant]
     Indication: RESPIRATORY TRACT INFECTION
     Dates: start: 20121126, end: 20121230
  12. SENNASID//SENNOSIDE A+B CALCIUM [Concomitant]
     Indication: CONSTIPATION
     Dates: start: 20120213, end: 20120305

REACTIONS (1)
  - Oedema peripheral [Unknown]
